FAERS Safety Report 7334591-8 (Version None)
Quarter: 2011Q1

REPORT INFORMATION
  Report Type: 
  Country: None (occurrence: None)
  Receive Date: 20110307
  Receipt Date: 20101117
  Transmission Date: 20110831
  Serious: No
  Sender: FDA-Public Use
  Company Number: A0893131A

PATIENT
  Sex: Female

DRUGS (1)
  1. REQUIP [Suspect]
     Route: 065
     Dates: start: 20100806

REACTIONS (1)
  - HYPERSENSITIVITY [None]
